FAERS Safety Report 7163604-1 (Version None)
Quarter: 2010Q4

REPORT INFORMATION
  Report Type: 
  Country: None (occurrence: None)
  Receive Date: 20101215
  Receipt Date: 20100517
  Transmission Date: 20110411
  Serious: Yes (Other)
  Sender: FDA-Public Use
  Company Number: US-PFIZER INC-2007035668

PATIENT
  Sex: Male
  Weight: 63.492 kg

DRUGS (8)
  1. LYRICA [Suspect]
     Indication: POST HERPETIC NEURALGIA
     Dosage: 100 MG, 3X/DAY
     Route: 048
     Dates: start: 20060101
  2. LYRICA [Suspect]
     Indication: HERPES ZOSTER
  3. LYRICA [Suspect]
     Indication: PAIN
  4. NEURONTIN [Suspect]
     Dosage: UNK
  5. METHADONE [Concomitant]
     Indication: PAIN
  6. LUPRON [Concomitant]
     Indication: PROSTATE CANCER
     Dosage: UNK
  7. FURAMIDE [Concomitant]
     Indication: PROSTATE CANCER
     Dosage: UNK
  8. CALCIUM [Concomitant]
     Dosage: UNK

REACTIONS (9)
  - ALLODYNIA [None]
  - ASTHENIA [None]
  - BURNING SENSATION [None]
  - DRUG INEFFECTIVE FOR UNAPPROVED INDICATION [None]
  - METASTASES TO BONE [None]
  - PAIN [None]
  - POST HERPETIC NEURALGIA [None]
  - PROSTATE CANCER [None]
  - TREMOR [None]
